FAERS Safety Report 9032341 (Version 1)
Quarter: 2013Q1

REPORT INFORMATION
  Report Type: Spontaneous
  Country: JP (occurrence: JP)
  Receive Date: 20130125
  Receipt Date: 20130125
  Transmission Date: 20140127
  Serious: Yes (Hospitalization)
  Sender: FDA-Public Use
  Company Number: JP-B.I. PHARMACEUTICALS,INC./RIDGEFIELD-2013-BI-01911NB

PATIENT
  Age: 66 Year
  Sex: Female

DRUGS (4)
  1. PRAZAXA [Suspect]
     Indication: ATRIAL FIBRILLATION
     Dosage: 220 MG
     Route: 048
     Dates: start: 20130107, end: 20130117
  2. MICARDIS [Concomitant]
     Route: 048
     Dates: start: 20130104
  3. ARTIST [Concomitant]
     Route: 048
     Dates: start: 20130104
  4. DIGITALIS [Concomitant]
     Route: 048

REACTIONS (1)
  - Granulocytopenia [Recovered/Resolved]
